FAERS Safety Report 8837261 (Version 1)
Quarter: 2012Q4

REPORT INFORMATION
  Report Type: 
  Country: US (occurrence: US)
  Receive Date: 20121011
  Receipt Date: 20121011
  Transmission Date: 20130627
  Serious: Yes (Death)
  Sender: FDA-Public Use
  Company Number: US-ROCHE-1110964

PATIENT
  Sex: Male

DRUGS (4)
  1. NUTROPIN [Suspect]
     Indication: HYPOPITUITARISM
  2. NUTROPIN [Suspect]
     Indication: POSTPARTUM HYPOPITUITARISM
  3. NUTROPIN [Suspect]
     Indication: HYPOPITUITARISM
  4. NUTROPIN [Suspect]
     Indication: PITUITARY INFARCTION

REACTIONS (1)
  - Death [Fatal]
